FAERS Safety Report 23029429 (Version 1)
Quarter: 2023Q4

REPORT INFORMATION
  Report Type: Spontaneous
  Country: CN (occurrence: CN)
  Receive Date: 20231004
  Receipt Date: 20231004
  Transmission Date: 20240110
  Serious: Yes (Hospitalization, Other)
  Sender: FDA-Public Use
  Company Number: CN-PFIZER INC-PV202300163689

PATIENT
  Age: 34 Year
  Sex: Male
  Weight: 62 kg

DRUGS (8)
  1. CYTARABINE [Suspect]
     Active Substance: CYTARABINE
     Indication: B-cell lymphoma
     Dosage: 3.5 G, 2X/DAY
     Route: 041
     Dates: start: 20230826, end: 20230826
  2. METHOTREXATE SODIUM [Suspect]
     Active Substance: METHOTREXATE SODIUM
     Indication: B-cell lymphoma
     Dosage: 18.6 ML, 1X/DAY
     Route: 041
     Dates: start: 20230822, end: 20230822
  3. LEVOLEUCOVORIN CALCIUM [Suspect]
     Active Substance: LEVOLEUCOVORIN CALCIUM
     Indication: B-cell lymphoma
     Dosage: 25 MG, 1X/DAY
     Route: 041
     Dates: start: 20230822, end: 20230822
  4. VINCRISTINE SULFATE [Suspect]
     Active Substance: VINCRISTINE SULFATE
     Indication: B-cell lymphoma
     Dosage: 2 MG, 1X/DAY
     Route: 042
     Dates: start: 20230822, end: 20230822
  5. SODIUM CHLORIDE [Concomitant]
     Active Substance: SODIUM CHLORIDE
     Indication: Vehicle solution use
     Dosage: 40 ML, 1X/DAY
     Route: 042
     Dates: start: 20230822, end: 20230822
  6. SODIUM CHLORIDE [Concomitant]
     Active Substance: SODIUM CHLORIDE
     Dosage: 100 ML, 1X/DAY
     Route: 041
     Dates: start: 20230822, end: 20230822
  7. SODIUM CHLORIDE [Concomitant]
     Active Substance: SODIUM CHLORIDE
     Dosage: 500 ML, 1X/DAY
     Route: 041
     Dates: start: 20230822, end: 20230822
  8. SODIUM CHLORIDE [Concomitant]
     Active Substance: SODIUM CHLORIDE
     Dosage: 250 ML, 2X/DAY
     Route: 041
     Dates: start: 20230826, end: 20230826

REACTIONS (2)
  - Mucosal ulceration [Recovering/Resolving]
  - Cytopenia [Recovering/Resolving]

NARRATIVE: CASE EVENT DATE: 20230828
